FAERS Safety Report 7506475-3 (Version None)
Quarter: 2011Q2

REPORT INFORMATION
  Report Type: 
  Country: None (occurrence: None)
  Receive Date: 20110526
  Receipt Date: 20110517
  Transmission Date: 20111010
  Serious: Yes (Death, Hospitalization)
  Sender: FDA-Public Use
  Company Number: US-ACTELION-A-NJ2011-45776

PATIENT

DRUGS (3)
  1. VENTAVIS [Suspect]
     Indication: PULMONARY ARTERIAL HYPERTENSION
     Dosage: UNK
     Route: 055
     Dates: start: 20081024
  2. TRACLEER [Suspect]
     Indication: PULMONARY ARTERIAL HYPERTENSION
     Dosage: UNK
     Route: 048
     Dates: start: 20080620
  3. REVATIO [Concomitant]

REACTIONS (6)
  - DEATH [None]
  - PNEUMONIA [None]
  - LUNG NEOPLASM MALIGNANT [None]
  - MUSCULOSKELETAL CHEST PAIN [None]
  - DYSPNOEA [None]
  - BACK PAIN [None]
